FAERS Safety Report 4349046-2 (Version None)
Quarter: 2004Q2

REPORT INFORMATION
  Report Type: 
  Country: None (occurrence: None)
  Receive Date: 20040422
  Receipt Date: 20040412
  Transmission Date: 20050107
  Serious: Yes (Other)
  Sender: FDA-Public Use
  Company Number: 2250051-2004-00173

PATIENT
  Sex: Female

DRUGS (1)
  1. RHOGAM [Suspect]
     Dosage: 300 UG, IM
     Route: 030
     Dates: start: 20020319

REACTIONS (1)
  - HEPATITIS C ANTIBODY POSITIVE [None]
